FAERS Safety Report 9688829 (Version 3)
Quarter: 2014Q1

REPORT INFORMATION
  Report Type: Spontaneous
  Country: GB (occurrence: GB)
  Receive Date: 20131114
  Receipt Date: 20140120
  Transmission Date: 20141002
  Serious: Yes (Disabling)
  Sender: FDA-Public Use
  Company Number: GB-ABBVIE-13P-167-1162370-00

PATIENT
  Age: 36 Year
  Sex: Female

DRUGS (1)
  1. HUMIRA [Suspect]
     Indication: RHEUMATOID ARTHRITIS
     Dosage: FREQUENCY: 2/52
     Route: 058
     Dates: start: 20100101

REACTIONS (3)
  - Infertility female [Not Recovered/Not Resolved]
  - Surgical failure [Not Recovered/Not Resolved]
  - Treatment failure [Unknown]
